FAERS Safety Report 8240512-6 (Version None)
Quarter: 2012Q1

REPORT INFORMATION
  Report Type: 
  Country: None (occurrence: None)
  Receive Date: 20120314
  Receipt Date: 20111213
  Transmission Date: 20120608
  Serious: No
  Sender: FDA-Public Use
  Company Number: HRA-CDB20110127

PATIENT
  Age: 27 Year
  Sex: Female
  Weight: 54.8852 kg

DRUGS (2)
  1. ELLA [Suspect]
     Indication: POST COITAL CONTRACEPTION
     Dates: start: 20110101, end: 20110101
  2. PLAN B ONE-STEP [Suspect]
     Indication: POST COITAL CONTRACEPTION
     Dosage: 1.5 MG (1.5 MG, 1 IN 1 D), ORAL
     Route: 048
     Dates: start: 20111202, end: 20111202

REACTIONS (2)
  - DRY MOUTH [None]
  - THIRST [None]
